FAERS Safety Report 4628017-2 (Version None)
Quarter: 2005Q2

REPORT INFORMATION
  Report Type: 
  Country: None (occurrence: None)
  Receive Date: 20050401
  Receipt Date: 20050316
  Transmission Date: 20051028
  Serious: Yes (Hospitalization, Other)
  Sender: FDA-Public Use
  Company Number: 2005-DE-01061GD

PATIENT
  Age: 43 Year
  Sex: Male

DRUGS (16)
  1. CALCIUM CARBONATE [Suspect]
     Dosage: PO
     Route: 048
  2. CLONIDINE HCL [Suspect]
     Dosage: TD
     Route: 062
  3. KETOROLAC [Suspect]
     Indication: PAIN
     Dosage: IV
     Route: 042
  4. ............ [Concomitant]
  5. ASPIRINE (ACETYLSALICYLIC ACID) (ACETYLSALICYLIC ACID 'BAYER') [Concomitant]
  6. LANSOPRAZOLE [Concomitant]
  7. AMLODIPINE [Concomitant]
  8. ATORVASTATIN CALCIUM [Concomitant]
  9. GABAPENTIN [Concomitant]
  10. CLOPIDOGREL BISULFATE [Concomitant]
  11. INSULIN [Concomitant]
  12. FUROSEMIDE [Concomitant]
  13. FENTANYL [Concomitant]
  14. HYDROCODONE BITARTRATE [Concomitant]
  15. LACTULOSE [Concomitant]
  16. PROCHLORPERAZINE MALEATE [Concomitant]

REACTIONS (22)
  - BLOOD ALBUMIN DECREASED [None]
  - BLOOD CHLORIDE DECREASED [None]
  - BLOOD CREATININE INCREASED [None]
  - CALCIPHYLAXIS [None]
  - CANDIDIASIS [None]
  - CYANOSIS [None]
  - DRUG INEFFECTIVE [None]
  - EXTREMITY NECROSIS [None]
  - GANGRENE [None]
  - HYPERAESTHESIA [None]
  - INADEQUATE ANALGESIA [None]
  - NECROSIS [None]
  - OPEN WOUND [None]
  - PARATHYROID REIMPLANTATION [None]
  - PENILE PAIN [None]
  - PENIS DISORDER [None]
  - PERIPHERAL COLDNESS [None]
  - PERIPHERAL VASCULAR DISORDER [None]
  - SKIN NECROSIS [None]
  - URINARY RETENTION [None]
  - URINARY TRACT INFECTION FUNGAL [None]
  - VASCULAR CALCIFICATION [None]
